FAERS Safety Report 6183976-4 (Version None)
Quarter: 2009Q2

REPORT INFORMATION
  Report Type: 
  Country: None (occurrence: None)
  Receive Date: 20090506
  Receipt Date: 20090421
  Transmission Date: 20091009
  Serious: Yes (Other)
  Sender: FDA-Public Use
  Company Number: 000717

PATIENT
  Age: 68 Year
  Sex: Male

DRUGS (6)
  1. PROSTAVASIN /00501501/ (PROSTAVASIN) [Suspect]
     Indication: PERIPHERAL ARTERIAL OCCLUSIVE DISEASE
     Dosage: (1 VIAL ONCE INTRA-ARTERIAL), (2 VIALS ONCE INTRAVENOUS)), (2 DF BID INTRAVENOUS))
  2. CLEXANE (CLEXANE) (NOT SPECIFIED) [Suspect]
  3. HEPARIN [Suspect]
     Dosage: (5000IE ONCE)
  4. ASS (ASS) (NOT SPECIFIED) [Suspect]
     Dosage: (100 MG, 100 MG ONCE), (100 MG QD, 100MG DAILY)
  5. CLOPIDOGREL [Suspect]
     Dosage: (75 MG, 75MG ONCE)
  6. CILOSTAZOL [Suspect]
     Dosage: (100 MG BID)

REACTIONS (1)
  - POST PROCEDURAL HAEMORRHAGE [None]
